FAERS Safety Report 8038254-5 (Version None)
Quarter: 2012Q1

REPORT INFORMATION
  Report Type: 
  Country: None (occurrence: None)
  Receive Date: 20120111
  Receipt Date: 20111206
  Transmission Date: 20120608
  Serious: Yes (Hospitalization)
  Sender: FDA-Public Use
  Company Number: US-AMGEN-USASP2011064933

PATIENT
  Age: 35 Year
  Sex: Male

DRUGS (3)
  1. TACLONEX [Concomitant]
     Dosage: UNK
  2. CLOBETASOL [Concomitant]
     Dosage: UNK
  3. ENBREL [Suspect]
     Indication: PSORIASIS
     Dosage: 50 MG, 2 TIMES/WK
     Dates: start: 20111110, end: 20111201

REACTIONS (2)
  - CONVULSION [None]
  - AMNESIA [None]
